FAERS Safety Report 8049608-5 (Version None)
Quarter: 2012Q1

REPORT INFORMATION
  Report Type: 
  Country: None (occurrence: None)
  Receive Date: 20120117
  Receipt Date: 20120111
  Transmission Date: 20120608
  Serious: Yes (Other)
  Sender: FDA-Public Use
  Company Number: US-PFIZER INC-2012009262

PATIENT
  Sex: Female
  Weight: 68.027 kg

DRUGS (9)
  1. LIPITOR [Suspect]
     Indication: BLOOD TRIGLYCERIDES INCREASED
     Dosage: 20 MG, UNK
     Dates: start: 20111201
  2. CRESTOR [Suspect]
     Indication: HYPERTENSION
  3. LIPITOR [Suspect]
     Indication: CORONARY ARTERIAL STENT INSERTION
  4. CRESTOR [Suspect]
     Indication: BLOOD CHOLESTEROL INCREASED
     Dosage: UNK
     Route: 048
     Dates: end: 20111201
  5. CRESTOR [Suspect]
     Indication: CORONARY ARTERIAL STENT INSERTION
  6. LIPITOR [Suspect]
     Indication: HYPERTENSION
     Dosage: 10 MG, UNK
  7. CRESTOR [Suspect]
     Indication: BLOOD TRIGLYCERIDES INCREASED
  8. LIPITOR [Suspect]
     Indication: BLOOD CHOLESTEROL INCREASED
     Dosage: 40 MG, UNK
     Route: 048
  9. METFORMIN [Concomitant]
     Indication: DIABETES MELLITUS
     Dosage: 500 MG, 2X/DAY

REACTIONS (5)
  - PAIN IN EXTREMITY [None]
  - MYALGIA [None]
  - BACK PAIN [None]
  - DRUG INEFFECTIVE [None]
  - ABASIA [None]
